FAERS Safety Report 6682709-2 (Version None)
Quarter: 2010Q2

REPORT INFORMATION
  Report Type: 
  Country: None (occurrence: None)
  Receive Date: 20100415
  Receipt Date: 20100409
  Transmission Date: 20101027
  Serious: Yes (Death, Other)
  Sender: FDA-Public Use
  Company Number: US-PURDUE-USA-2010-0043170

PATIENT
  Sex: Female

DRUGS (1)
  1. OXYCONTIN [Suspect]
     Indication: SURGERY
     Dosage: 80 MG, DAILY

REACTIONS (4)
  - DRUG DEPENDENCE [None]
  - HAEMORRHAGE [None]
  - MULTIPLE DRUG OVERDOSE [None]
  - PANCREATIC NEOPLASM [None]
